FAERS Safety Report 23954205 (Version 1)
Quarter: 2024Q2

REPORT INFORMATION
  Report Type: Spontaneous
  Country: US (occurrence: US)
  Receive Date: 20240609
  Receipt Date: 20240609
  Transmission Date: 20240716
  Serious: Yes (Hospitalization, Other)
  Sender: FDA-Public Use
  Company Number: US-NOVOPROD-1233025

PATIENT
  Age: 63 Year
  Sex: Female

DRUGS (2)
  1. NOVOLOG [Suspect]
     Active Substance: INSULIN ASPART
     Indication: Type 2 diabetes mellitus
     Dosage: 4-12 UNITS DAILY
     Route: 058
  2. LANTISEPTIC CALDAZINC OINTMENT [Concomitant]
     Indication: Product used for unknown indication
     Dosage: UNK

REACTIONS (9)
  - Thrombosis [Unknown]
  - Heart rate decreased [Unknown]
  - Seizure [Unknown]
  - Nephrolithiasis [Unknown]
  - Cardiac pacemaker insertion [Unknown]
  - Warm autoimmune haemolytic anaemia [Unknown]
  - COVID-19 [Recovered/Resolved]
  - Visual impairment [Unknown]
  - Wrong technique in product usage process [Unknown]

NARRATIVE: CASE EVENT DATE: 20220731
